FAERS Safety Report 4879643-7 (Version None)
Quarter: 2006Q1

REPORT INFORMATION
  Report Type: 
  Country: None (occurrence: None)
  Receive Date: 20060111
  Receipt Date: 20051222
  Transmission Date: 20060701
  Serious: Yes (Hospitalization)
  Sender: FDA-Public Use
  Company Number: DE200511001815

PATIENT
  Age: 11 Year
  Sex: Male

DRUGS (1)
  1. STRATTERA [Suspect]
     Indication: ATTENTION DEFICIT/HYPERACTIVITY DISORDER
     Dosage: 35 MG, DAILY (1/D), ORAL
     Route: 048
     Dates: start: 20050808

REACTIONS (3)
  - COGNITIVE DISORDER [None]
  - PANIC ATTACK [None]
  - PSYCHOSOMATIC DISEASE [None]
